FAERS Safety Report 8065584-3 (Version None)
Quarter: 2012Q1

REPORT INFORMATION
  Report Type: 
  Country: None (occurrence: None)
  Receive Date: 20120124
  Receipt Date: 20120113
  Transmission Date: 20120608
  Serious: Yes (Death, Life-Threatening, Other)
  Sender: FDA-Public Use
  Company Number: NL-JNJFOC-20090301144

PATIENT
  Sex: Male
  Weight: 92 kg

DRUGS (6)
  1. INFLIXIMAB, RECOMBINANT [Suspect]
     Indication: RHEUMATOID ARTHRITIS
     Route: 042
     Dates: start: 20010605
  2. METHOTREXATE [Suspect]
     Indication: RHEUMATOID ARTHRITIS
  3. INFLIXIMAB, RECOMBINANT [Suspect]
     Route: 042
     Dates: end: 20020610
  4. ACETAMINOPHEN [Concomitant]
     Indication: PAIN
  5. TAMSULOSIN HYDROCHLORIDE [Concomitant]
     Indication: PROSTATIC DISORDER
     Dates: start: 19980101
  6. PROSCAR [Concomitant]
     Indication: PROSTATIC DISORDER

REACTIONS (1)
  - CHRONIC MYELOMONOCYTIC LEUKAEMIA [None]
